FAERS Safety Report 9275207 (Version 1)
Quarter: 2013Q2

REPORT INFORMATION
  Report Type: Spontaneous
  Country: US (occurrence: None)
  Receive Date: 20130501
  Receipt Date: 20130501
  Transmission Date: 20140414
  Serious: Yes (Hospitalization)
  Sender: FDA-Public Use
  Company Number: None

PATIENT
  Age: 3 Month
  Sex: Male
  Weight: 5.9 kg

DRUGS (1)
  1. HYLAND^S BABY TEETHING TABLETS [Suspect]
     Indication: TEETHING
     Dosage: 2 TABLETS/HR; 3 HRS
     Route: 048
     Dates: start: 20130331, end: 20130331

REACTIONS (3)
  - Lethargy [None]
  - Unresponsive to stimuli [None]
  - Product quality issue [None]
